FAERS Safety Report 15267309 (Version 1)
Quarter: 2018Q3

REPORT INFORMATION
  Report Type: Spontaneous
  Country: US (occurrence: US)
  Receive Date: 20180724
  Receipt Date: 20180724
  Transmission Date: 20181010
  Serious: Yes (Other)
  Sender: FDA-Public Use
  Company Number: None

PATIENT
  Age: 69 Year
  Sex: Female
  Weight: 51.75 kg

DRUGS (1)
  1. VALSARTAN. [Suspect]
     Active Substance: VALSARTAN
     Indication: HYPERTENSION
     Route: 048
     Dates: start: 20160501, end: 20170715

REACTIONS (4)
  - Drug effect decreased [None]
  - Neurological symptom [None]
  - Sensory disturbance [None]
  - Lyme disease [None]

NARRATIVE: CASE EVENT DATE: 20170613
